FAERS Safety Report 10528194 (Version 4)
Quarter: 2015Q2

REPORT INFORMATION
  Report Type: Spontaneous
  Country: US (occurrence: US)
  Receive Date: 20141020
  Receipt Date: 20150630
  Transmission Date: 20150821
  Serious: Yes (Hospitalization)
  Sender: FDA-Public Use
  Company Number: US-BAYER-2014-154928

PATIENT
  Age: 32 Year
  Sex: Female
  Weight: 78.46 kg

DRUGS (1)
  1. MIRENA [Suspect]
     Active Substance: LEVONORGESTREL
     Indication: CONTRACEPTION
     Dosage: 20 MCG/24HR, CONT
     Route: 015
     Dates: start: 20080326, end: 20110614

REACTIONS (14)
  - Pain [None]
  - Drug ineffective [None]
  - Emotional distress [None]
  - Uterine perforation [None]
  - Pregnancy with contraceptive device [None]
  - Injury [None]
  - Stress [None]
  - Sleep disorder [None]
  - Scar [None]
  - Depression [None]
  - Fear of disease [None]
  - Device issue [None]
  - Affect lability [None]
  - Anxiety [None]

NARRATIVE: CASE EVENT DATE: 201008
